FAERS Safety Report 24431827 (Version 1)
Quarter: 2024Q4

REPORT INFORMATION
  Report Type: Spontaneous
  Country: NL (occurrence: NL)
  Receive Date: 20241014
  Receipt Date: 20241014
  Transmission Date: 20250115
  Serious: Yes (Life-Threatening)
  Sender: TEVA
  Company Number: None

PATIENT
  Age: 13 Year
  Sex: Female

DRUGS (1)
  1. FLUOXETINE [Suspect]
     Active Substance: FLUOXETINE HYDROCHLORIDE
     Indication: Depression
     Dosage: 1 PIECE ONCE PER DAY ;BRAND NAME NOT SPECIFIED
     Route: 065
     Dates: start: 20240726, end: 20240826

REACTIONS (2)
  - Suicidal behaviour [Recovering/Resolving]
  - Suicidal ideation [Recovering/Resolving]
